FAERS Safety Report 9370217 (Version 3)
Quarter: 2015Q2

REPORT INFORMATION
  Report Type: Spontaneous
  Country: US (occurrence: None)
  Receive Date: 20130624
  Receipt Date: 20150506
  Transmission Date: 20150821
  Serious: Yes (Hospitalization, Other)
  Sender: FDA-Public Use
  Company Number: ADR-2013-01038

PATIENT
  Age: 41 Year
  Sex: Female

DRUGS (4)
  1. BACLOFEN INTRATHECAL [Suspect]
     Active Substance: BACLOFEN
     Indication: PAIN
  2. DILAUDID [Suspect]
     Active Substance: HYDROMORPHONE HYDROCHLORIDE
  3. FENTANYL. [Concomitant]
     Active Substance: FENTANYL
  4. ZANAFLEX (TIZANIDINE) [Concomitant]

REACTIONS (29)
  - Loss of consciousness [None]
  - Device failure [None]
  - Overdose [None]
  - Paralysis [None]
  - Amnesia [None]
  - Malaise [None]
  - Infusion site mass [None]
  - Device dislocation [None]
  - Pain [None]
  - Fall [None]
  - Micturition disorder [None]
  - Hernia [None]
  - Rectocele [None]
  - Nerve injury [None]
  - Cerebrospinal fluid leakage [None]
  - Abasia [None]
  - Spinal cord neoplasm [None]
  - Device leakage [None]
  - Implant site pain [None]
  - Drug ineffective [None]
  - Depression [None]
  - Brain injury [None]
  - Device inversion [None]
  - Divorced [None]
  - Victim of crime [None]
  - Movement disorder [None]
  - Cardiac disorder [None]
  - Muscle spasms [None]
  - General physical health deterioration [None]

NARRATIVE: CASE EVENT DATE: 20030501
